FAERS Safety Report 8974544 (Version 1)
Quarter: 2012Q4

REPORT INFORMATION
  Report Type: 
  Country: AU (occurrence: AU)
  Receive Date: 20121219
  Receipt Date: 20121219
  Transmission Date: 20130627
  Serious: Yes (Life-Threatening)
  Sender: FDA-Public Use
  Company Number: AU-009507513-1212AUS004142

PATIENT
  Age: 76 Year
  Sex: Female

DRUGS (3)
  1. SIMVASTATIN [Suspect]
     Dosage: 80 mg, UNK
     Route: 048
     Dates: start: 20120524, end: 20120524
  2. ROXITHROMYCIN [Interacting]
     Dosage: 300 mg, UNK
     Route: 065
     Dates: start: 20120518, end: 20120524
  3. CAPTOPRIL [Concomitant]

REACTIONS (3)
  - Rhabdomyolysis [Not Recovered/Not Resolved]
  - Electrocardiogram QT prolonged [Not Recovered/Not Resolved]
  - Renal failure acute [Not Recovered/Not Resolved]
